FAERS Safety Report 23716476 (Version 2)
Quarter: 2024Q2

REPORT INFORMATION
  Report Type: Report from Study
  Country: US (occurrence: US)
  Receive Date: 20240408
  Receipt Date: 20240509
  Transmission Date: 20240716
  Serious: Yes (Hospitalization)
  Sender: FDA-Public Use
  Company Number: US-ALXN-202404USA000226US

PATIENT
  Sex: Male
  Weight: 68.027 kg

DRUGS (1)
  1. SOLIRIS [Suspect]
     Active Substance: ECULIZUMAB
     Indication: Haemolytic uraemic syndrome
     Dosage: 1200 MILLIGRAM, Q2W
     Route: 042
     Dates: start: 20240314

REACTIONS (3)
  - Asthenia [Unknown]
  - Fatigue [Unknown]
  - Off label use [Unknown]
